FAERS Safety Report 17887630 (Version 1)
Quarter: 2020Q2

REPORT INFORMATION
  Report Type: Spontaneous
  Country: US (occurrence: US)
  Receive Date: 20200611
  Receipt Date: 20200611
  Transmission Date: 20200714
  Serious: Yes (Other)
  Sender: FDA-Public Use
  Company Number: US-GILEAD-2020-0470688

PATIENT
  Age: 60 Year
  Sex: Female
  Weight: 78 kg

DRUGS (8)
  1. REMDESIVIR. [Suspect]
     Active Substance: REMDESIVIR
     Dosage: 100 UNK
     Route: 042
     Dates: start: 20200528, end: 20200530
  2. VERSED [Concomitant]
     Active Substance: MIDAZOLAM HYDROCHLORIDE
  3. REMDESIVIR. [Suspect]
     Active Substance: REMDESIVIR
     Indication: COVID-19
     Dosage: 200 MG, QD
     Route: 042
     Dates: start: 20200527, end: 20200527
  4. LOVENOX [Concomitant]
     Active Substance: ENOXAPARIN SODIUM
  5. FUROSEMIDE. [Concomitant]
     Active Substance: FUROSEMIDE
  6. FENTANYL. [Concomitant]
     Active Substance: FENTANYL
  7. UNASYN [AMPICILLIN SODIUM;SULBACTAM SODIUM] [Concomitant]
  8. KEPPRA [Concomitant]
     Active Substance: LEVETIRACETAM

REACTIONS (1)
  - Renal impairment [Not Recovered/Not Resolved]

NARRATIVE: CASE EVENT DATE: 20200530
